FAERS Safety Report 19866496 (Version 1)
Quarter: 2021Q3

REPORT INFORMATION
  Report Type: Report from Study
  Country: JP (occurrence: JP)
  Receive Date: 20210922
  Receipt Date: 20210922
  Transmission Date: 20211014
  Serious: Yes (Hospitalization)
  Sender: FDA-Public Use
  Company Number: NVSJ2021JP007867

PATIENT
  Age: 18 Year
  Sex: Male

DRUGS (11)
  1. PREDONINE [Suspect]
     Active Substance: PREDNISOLONE
     Dosage: 10 MG
     Route: 048
     Dates: start: 20200706
  2. ILARIS [Suspect]
     Active Substance: CANAKINUMAB
     Dosage: 240 MG
     Route: 058
     Dates: start: 20200608
  3. ILARIS [Suspect]
     Active Substance: CANAKINUMAB
     Dosage: 240 MG
     Route: 058
     Dates: start: 20200831
  4. ILARIS [Suspect]
     Active Substance: CANAKINUMAB
     Dosage: 240 MG
     Route: 058
     Dates: start: 20210329
  5. PREDONINE [Suspect]
     Active Substance: PREDNISOLONE
     Indication: STILL^S DISEASE
     Dosage: 20 MG
     Route: 048
     Dates: start: 20200110, end: 20200705
  6. ILARIS [Suspect]
     Active Substance: CANAKINUMAB
     Indication: STILL^S DISEASE
     Dosage: 240 MG
     Route: 058
     Dates: start: 20200110
  7. NEORAL [Suspect]
     Active Substance: CYCLOSPORINE
     Indication: STILL^S DISEASE
     Dosage: 200 MG
     Route: 048
     Dates: start: 20191225
  8. ILARIS [Suspect]
     Active Substance: CANAKINUMAB
     Dosage: 240 MG
     Route: 058
     Dates: start: 20200410
  9. ILARIS [Suspect]
     Active Substance: CANAKINUMAB
     Dosage: 240 MG
     Route: 058
     Dates: start: 20200803
  10. ILARIS [Suspect]
     Active Substance: CANAKINUMAB
     Dosage: 240 MG
     Route: 058
     Dates: start: 20200508
  11. ILARIS [Suspect]
     Active Substance: CANAKINUMAB
     Dosage: 240 MG
     Route: 058
     Dates: start: 20200706

REACTIONS (5)
  - Hypertension [Recovering/Resolving]
  - Hypertriglyceridaemia [Recovered/Resolved]
  - Inappropriate schedule of product administration [Unknown]
  - Condition aggravated [Unknown]
  - Aspartate aminotransferase increased [Recovered/Resolved]

NARRATIVE: CASE EVENT DATE: 20200402
